FAERS Safety Report 18684217 (Version 1)
Quarter: 2020Q4

REPORT INFORMATION
  Report Type: Spontaneous
  Country: US (occurrence: US)
  Receive Date: 20201230
  Receipt Date: 20201230
  Transmission Date: 20210114
  Serious: No
  Sender: FDA-Public Use
  Company Number: US-EMERGENT BIOSOLUTIONS,-20000496SP

PATIENT
  Sex: Male
  Weight: 99.8 kg

DRUGS (2)
  1. NARCAN [Suspect]
     Active Substance: NALOXONE HYDROCHLORIDE
     Indication: BACK PAIN
     Dosage: UNK
     Route: 045
  2. DIHYDROCODEINE [Concomitant]
     Active Substance: DIHYDROCODEINE
     Dosage: UNK
     Route: 065

REACTIONS (2)
  - Device issue [Unknown]
  - Product prescribing error [Unknown]
